FAERS Safety Report 9626575 (Version 2)
Quarter: 2013Q4

REPORT INFORMATION
  Report Type: Spontaneous
  Country: FR (occurrence: FR)
  Receive Date: 20131016
  Receipt Date: 20131016
  Transmission Date: 20140711
  Serious: Yes (Hospitalization)
  Sender: FDA-Public Use
  Company Number: FR-ALLERGAN-1315028US

PATIENT
  Age: 75 Year
  Sex: Male

DRUGS (1)
  1. OZURDEX [Suspect]
     Indication: MACULAR OEDEMA
     Dosage: 0.7 MG, SINGLE DOSE, RIGHT EYE
     Route: 031
     Dates: start: 20130503, end: 20130503

REACTIONS (2)
  - Subdural haematoma [Not Recovered/Not Resolved]
  - Headache [Unknown]
